FAERS Safety Report 16179183 (Version 1)
Quarter: 2019Q2

REPORT INFORMATION
  Report Type: Spontaneous
  Country: US (occurrence: US)
  Receive Date: 20190410
  Receipt Date: 20190410
  Transmission Date: 20190711
  Serious: Yes (Other)
  Sender: FDA-Public Use
  Company Number: US-ROCHE-2296895

PATIENT
  Sex: Male
  Weight: 71.28 kg

DRUGS (1)
  1. PULMOZYME [Suspect]
     Active Substance: DORNASE ALFA
     Indication: CYSTIC FIBROSIS
     Dosage: 2.5 MG/ML
     Route: 055
     Dates: start: 1995

REACTIONS (3)
  - Jaundice [Unknown]
  - Bile duct obstruction [Not Recovered/Not Resolved]
  - Small intestine carcinoma [Recovered/Resolved]

NARRATIVE: CASE EVENT DATE: 2018
